FAERS Safety Report 24118095 (Version 1)
Quarter: 2024Q3

REPORT INFORMATION
  Report Type: Report from Study
  Country: US (occurrence: None)
  Receive Date: 20240722
  Receipt Date: 20240722
  Transmission Date: 20241017
  Serious: Yes (Other)
  Sender: ASTRAZENECA
  Company Number: 2020SF11375

PATIENT
  Age: 79 Year
  Sex: Male

DRUGS (6)
  1. CALQUENCE [Suspect]
     Active Substance: ACALABRUTINIB
     Indication: Chronic lymphocytic leukaemia
     Route: 048
     Dates: start: 20200820
  2. ELIQUIS [Concomitant]
     Active Substance: APIXABAN
  3. DOFETILIDE [Concomitant]
     Active Substance: DOFETILIDE
  4. GLIMEPIRIDE [Concomitant]
     Active Substance: GLIMEPIRIDE
  5. FINASTERIDE [Concomitant]
     Active Substance: FINASTERIDE
  6. PSYLLIUM FIBER [Concomitant]
     Active Substance: PSYLLIUM HUSK

REACTIONS (4)
  - Cardiac fibrillation [Recovered/Resolved]
  - Dizziness [Not Recovered/Not Resolved]
  - Cardiac flutter [Recovered/Resolved]
  - Hypertension [Unknown]

NARRATIVE: CASE EVENT DATE: 20200910
